FAERS Safety Report 25958680 (Version 1)
Quarter: 2025Q4

REPORT INFORMATION
  Report Type: Spontaneous
  Country: CA (occurrence: CA)
  Receive Date: 20251024
  Receipt Date: 20251024
  Transmission Date: 20260118
  Serious: Yes (Other)
  Sender: RECKITT BENCKISER
  Company Number: CA-INDIVIOR US-INDV-178031-2025

PATIENT

DRUGS (33)
  1. SUBLOCADE [Suspect]
     Active Substance: BUPRENORPHINE
     Indication: Drug dependence
     Dosage: 300 MILLIGRAM, UNKNOWN (FIRST DOSE)
     Route: 064
     Dates: start: 20240702
  2. SUBLOCADE [Suspect]
     Active Substance: BUPRENORPHINE
     Dosage: 300 MILLIGRAM, UNKNOWN (FIRST DOSE)
     Route: 063
     Dates: start: 20240702
  3. SUBLOCADE [Suspect]
     Active Substance: BUPRENORPHINE
     Dosage: 300 MILLIGRAM, QMO (SECOND DOSE)
     Route: 064
     Dates: start: 20240821
  4. SUBLOCADE [Suspect]
     Active Substance: BUPRENORPHINE
     Dosage: 300 MILLIGRAM, QMO (SECOND DOSE)
     Route: 063
     Dates: start: 20240821
  5. SUBLOCADE [Suspect]
     Active Substance: BUPRENORPHINE
     Dosage: 300 MILLIGRAM, QMO (THIRD DOSE)
     Route: 064
     Dates: start: 20240918
  6. SUBLOCADE [Suspect]
     Active Substance: BUPRENORPHINE
     Dosage: 300 MILLIGRAM, QMO(THIRD DOSE)
     Route: 063
     Dates: start: 20240918
  7. SUBLOCADE [Suspect]
     Active Substance: BUPRENORPHINE
     Dosage: 300 MILLIGRAM, QMO (FOURTH DOSE)
     Route: 064
     Dates: start: 20241016
  8. SUBLOCADE [Suspect]
     Active Substance: BUPRENORPHINE
     Dosage: 300 MILLIGRAM, QMO(FOURTH DOSE)
     Route: 063
     Dates: start: 20241016
  9. SUBOXONE [Suspect]
     Active Substance: BUPRENORPHINE HYDROCHLORIDE\NALOXONE HYDROCHLORIDE
     Indication: Drug dependence
     Dosage: 24 MILLIGRAM, UNKNOWN
     Route: 064
     Dates: start: 2024, end: 2024
  10. SUBOXONE [Suspect]
     Active Substance: BUPRENORPHINE HYDROCHLORIDE\NALOXONE HYDROCHLORIDE
     Dosage: 32 MILLIGRAM, UNKNOWN
     Route: 064
     Dates: start: 2024
  11. FENTANYL [Suspect]
     Active Substance: FENTANYL
     Indication: Product used for unknown indication
     Dosage: UNK
     Route: 064
     Dates: start: 2024, end: 202502
  12. METHADONE [Suspect]
     Active Substance: METHADONE HYDROCHLORIDE
     Indication: Drug dependence
     Dosage: 100 MILLIGRAM, UNKNOWN
     Route: 064
     Dates: start: 202502, end: 2025
  13. METHADONE [Suspect]
     Active Substance: METHADONE HYDROCHLORIDE
     Dosage: 100 MILLIGRAM, UNKNOWN
     Route: 063
     Dates: start: 2025
  14. KADIAN [Suspect]
     Active Substance: MORPHINE SULFATE
     Indication: Product used for unknown indication
     Dosage: 300 MILLIGRAM, UNKNOWN
     Route: 064
     Dates: start: 202502, end: 2025
  15. KADIAN [Suspect]
     Active Substance: MORPHINE SULFATE
     Dosage: 300 MILLIGRAM, UNKNOWN
     Route: 063
     Dates: start: 2025
  16. LACTULOSE [Suspect]
     Active Substance: LACTULOSE
     Indication: Product used for unknown indication
     Dosage: UNK
     Route: 064
     Dates: start: 202411, end: 202502
  17. CLONAZEPAM [Suspect]
     Active Substance: CLONAZEPAM
     Indication: Product used for unknown indication
     Dosage: 0.25 MILLIGRAM, HS
     Route: 064
     Dates: start: 202412, end: 202501
  18. DICLECTIN [Suspect]
     Active Substance: DOXYLAMINE SUCCINATE\PYRIDOXINE HYDROCHLORIDE
     Indication: Product used for unknown indication
     Dosage: UNK
     Route: 064
     Dates: start: 2024, end: 2025
  19. DICLECTIN [Suspect]
     Active Substance: DOXYLAMINE SUCCINATE\PYRIDOXINE HYDROCHLORIDE
     Dosage: UNK
     Route: 063
     Dates: start: 2025
  20. ESCITALOPRAM [Suspect]
     Active Substance: ESCITALOPRAM OXALATE
     Indication: Product used for unknown indication
     Dosage: UNK
     Route: 064
     Dates: start: 2024, end: 2025
  21. ESCITALOPRAM [Suspect]
     Active Substance: ESCITALOPRAM OXALATE
     Dosage: UNK
     Route: 063
     Dates: start: 2025
  22. SACCHARATED IRON OXIDE [Suspect]
     Active Substance: IRON SUCROSE
     Indication: Product used for unknown indication
     Dosage: UNK
     Route: 064
     Dates: start: 2024, end: 2025
  23. SACCHARATED IRON OXIDE [Suspect]
     Active Substance: IRON SUCROSE
     Dosage: UNK
     Route: 063
     Dates: start: 2025
  24. MINERALS\VITAMINS [Suspect]
     Active Substance: MINERALS\VITAMINS
     Indication: Product used for unknown indication
     Dosage: UNK
     Route: 064
     Dates: start: 2024, end: 2025
  25. MINERALS\VITAMINS [Suspect]
     Active Substance: MINERALS\VITAMINS
     Dosage: UNK
     Route: 063
     Dates: start: 2025
  26. GRAVOL [Suspect]
     Active Substance: DIMENHYDRINATE
     Indication: Vomiting
     Dosage: UNK
     Route: 064
     Dates: start: 202501, end: 2025
  27. GRAVOL [Suspect]
     Active Substance: DIMENHYDRINATE
     Dosage: UNK
     Route: 063
     Dates: start: 2025
  28. ZOFRAN [Suspect]
     Active Substance: ONDANSETRON HYDROCHLORIDE
     Indication: Vomiting
     Dosage: UNK
     Route: 064
     Dates: start: 202501, end: 2025
  29. ZOFRAN [Suspect]
     Active Substance: ONDANSETRON HYDROCHLORIDE
     Dosage: UNK
     Route: 063
     Dates: start: 2025
  30. METOCLOPRAMIDE HYDROCHLORIDE [Suspect]
     Active Substance: METOCLOPRAMIDE HYDROCHLORIDE
     Indication: Vomiting
     Dosage: UNK
     Route: 064
     Dates: start: 202501, end: 2025
  31. METOCLOPRAMIDE HYDROCHLORIDE [Suspect]
     Active Substance: METOCLOPRAMIDE HYDROCHLORIDE
     Dosage: UNK
     Route: 063
     Dates: start: 2025
  32. NICOTINE [Suspect]
     Active Substance: NICOTINE
     Indication: Product used for unknown indication
     Dosage: UNK
     Route: 064
     Dates: end: 2025
  33. NICOTINE [Suspect]
     Active Substance: NICOTINE
     Dosage: UNK
     Route: 063
     Dates: start: 2025

REACTIONS (5)
  - Small for dates baby [Recovered/Resolved]
  - Microcephaly [Recovered/Resolved]
  - Drug withdrawal syndrome neonatal [Recovered/Resolved]
  - Foetal exposure during pregnancy [Recovered/Resolved]
  - Exposure via breast milk [Not Recovered/Not Resolved]

NARRATIVE: CASE EVENT DATE: 20240101
